FAERS Safety Report 23830036 (Version 1)
Quarter: 2024Q2

REPORT INFORMATION
  Report Type: Report from Study
  Country: US (occurrence: US)
  Receive Date: 20240508
  Receipt Date: 20240508
  Transmission Date: 20240716
  Serious: Yes (Other)
  Sender: FDA-Public Use
  Company Number: US-ABBVIE-5743890

PATIENT
  Sex: Female

DRUGS (1)
  1. SKYRIZI [Suspect]
     Active Substance: RISANKIZUMAB-RZAA
     Indication: Psoriatic arthropathy
     Route: 058

REACTIONS (16)
  - Musculoskeletal discomfort [Unknown]
  - Erythema [Unknown]
  - Arthralgia [Unknown]
  - Systemic lupus erythematosus [Unknown]
  - Eyelid rash [Unknown]
  - Swelling face [Unknown]
  - Fungal skin infection [Unknown]
  - Skin exfoliation [Unknown]
  - Pruritus [Unknown]
  - Pain [Unknown]
  - Eye swelling [Unknown]
  - Eye pain [Unknown]
  - Feeling hot [Unknown]
  - Autoimmune disorder [Unknown]
  - Ocular hyperaemia [Unknown]
  - Eye pruritus [Unknown]

NARRATIVE: CASE EVENT DATE: 20230101
